FAERS Safety Report 18451626 (Version 9)
Quarter: 2025Q2

REPORT INFORMATION
  Report Type: Report from Study
  Country: US (occurrence: US)
  Receive Date: 20201102
  Receipt Date: 20250423
  Transmission Date: 20250716
  Serious: Yes (Life-Threatening, Hospitalization, Other)
  Sender: TAKEDA
  Company Number: US-TAKEDA-US202028717

PATIENT
  Age: 69 Year
  Sex: Female

DRUGS (45)
  1. TEDUGLUTIDE [Suspect]
     Active Substance: TEDUGLUTIDE
     Indication: Short-bowel syndrome
     Dosage: 2.9 MILLIGRAM, QD
     Dates: start: 20130812, end: 20130909
  2. TEDUGLUTIDE [Suspect]
     Active Substance: TEDUGLUTIDE
     Dosage: 1.5 MILLIGRAM, QD
     Dates: start: 20130920, end: 20131009
  3. TEDUGLUTIDE [Suspect]
     Active Substance: TEDUGLUTIDE
     Dosage: 2 MILLIGRAM, QD
     Dates: start: 20131009, end: 20131204
  4. TEDUGLUTIDE [Suspect]
     Active Substance: TEDUGLUTIDE
     Dosage: 2.9 MILLIGRAM, QD
     Dates: start: 20131204, end: 20140827
  5. TEDUGLUTIDE [Suspect]
     Active Substance: TEDUGLUTIDE
     Dosage: 1.5 MILLIGRAM, QD
     Dates: start: 20140910, end: 20141001
  6. TEDUGLUTIDE [Suspect]
     Active Substance: TEDUGLUTIDE
     Dosage: 0.75 MILLIGRAM, QD
     Dates: start: 20141001, end: 20150114
  7. TEDUGLUTIDE [Suspect]
     Active Substance: TEDUGLUTIDE
     Dosage: 1.5 MILLIGRAM, QD
     Dates: start: 20150114, end: 201510
  8. TEDUGLUTIDE [Suspect]
     Active Substance: TEDUGLUTIDE
     Dosage: 2.9 MILLIGRAM, QD
     Dates: start: 201510, end: 201511
  9. TEDUGLUTIDE [Suspect]
     Active Substance: TEDUGLUTIDE
     Dosage: 1.5 MILLIGRAM, QD
     Dates: start: 20161116, end: 20170322
  10. TEDUGLUTIDE [Suspect]
     Active Substance: TEDUGLUTIDE
     Dosage: 2.9 MILLIGRAM, 3/WEEK
     Dates: start: 20170322, end: 20190505
  11. TEDUGLUTIDE [Suspect]
     Active Substance: TEDUGLUTIDE
     Dosage: 1.2 MILLIGRAM, 4/WEEK
     Dates: start: 20190515, end: 20190828
  12. TRAZODONE HCL [Concomitant]
     Active Substance: TRAZODONE HYDROCHLORIDE
     Indication: Neck pain
     Dosage: 150 MILLIGRAM, QD
     Dates: start: 20190916, end: 20190930
  13. TRAZODONE HCL [Concomitant]
     Active Substance: TRAZODONE HYDROCHLORIDE
     Indication: Insomnia
  14. DILAUDID [Concomitant]
     Active Substance: HYDROMORPHONE HYDROCHLORIDE
     Indication: Pain
     Dosage: 0.5 MILLIGRAM, SINGLE
     Dates: start: 20200125, end: 20200125
  15. ONDANSETRON [Concomitant]
     Active Substance: ONDANSETRON
     Indication: Nausea
     Dates: start: 20200125, end: 20200127
  16. CHLORDIAZEPOXIDE [Concomitant]
     Active Substance: CHLORDIAZEPOXIDE
     Indication: Anxiety
     Dosage: 2.5 MILLIGRAM, QOD
     Dates: start: 20170322
  17. CHLORDIAZEPOXIDE [Concomitant]
     Active Substance: CHLORDIAZEPOXIDE
     Dosage: 2.50 MILLIGRAM, QD
     Dates: start: 20200715
  18. CLIDINIUM [Concomitant]
     Active Substance: CLIDINIUM
     Indication: Abdominal pain
     Dosage: 5 MILLIGRAM, QD
     Dates: start: 20200715
  19. SPIRIVA [Concomitant]
     Active Substance: TIOTROPIUM BROMIDE MONOHYDRATE
     Indication: Hypoxia
     Dosage: 18 MICROGRAM, QD
     Dates: start: 20210514
  20. LIDOCAINE [Concomitant]
     Active Substance: LIDOCAINE
     Indication: Prophylaxis
     Dosage: 2 PERCENT, QD
     Dates: start: 20190705, end: 20190705
  21. ACETAMINOPHEN [Concomitant]
     Active Substance: ACETAMINOPHEN
     Indication: Prophylaxis
     Dosage: 1000 MILLIGRAM, Q8HR
     Dates: start: 20190918, end: 20190930
  22. SODIUM CHLORIDE [Concomitant]
     Active Substance: SODIUM CHLORIDE
     Indication: Sinus disorder
     Dosage: 0.65 PERCENT, QD
     Dates: start: 20190920, end: 20190930
  23. BENTYL [Concomitant]
     Active Substance: DICYCLOMINE HYDROCHLORIDE
     Indication: Short-bowel syndrome
     Dosage: 20 MILLIGRAM, TID
     Dates: start: 20190916, end: 20190929
  24. MAGNESIUM SULFATE [Concomitant]
     Active Substance: MAGNESIUM SULFATE
     Indication: Hypomagnesaemia
     Dosage: 1.50 MILLIGRAM, TID
     Dates: start: 20190608
  25. TERIPARATIDE [Concomitant]
     Active Substance: TERIPARATIDE
     Indication: Osteoporosis
     Dosage: 20.00 MICROGRAM, QD
     Dates: start: 20200926
  26. TRAZODONE [Concomitant]
     Active Substance: TRAZODONE HYDROCHLORIDE
     Indication: Insomnia
  27. TRAZODONE [Concomitant]
     Active Substance: TRAZODONE HYDROCHLORIDE
     Indication: Generalised anxiety disorder
  28. CHOLECALCIFEROL [Concomitant]
     Active Substance: CHOLECALCIFEROL
     Indication: Hypovitaminosis
     Dosage: 5000.00 INTERNATIONAL UNIT, QD
     Dates: start: 20220212
  29. CHOLECALCIFEROL [Concomitant]
     Active Substance: CHOLECALCIFEROL
     Indication: Mineral deficiency
  30. CYCLOBENZAPRINE HYDROCHLORIDE [Concomitant]
     Active Substance: CYCLOBENZAPRINE HYDROCHLORIDE
     Indication: Myalgia
  31. AMILORIDE [Concomitant]
     Active Substance: AMILORIDE
     Indication: Electrolyte imbalance
     Dosage: 10 MILLIGRAM, QD
     Dates: start: 20130925
  32. ASCORBIC ACID [Concomitant]
     Active Substance: ASCORBIC ACID
     Indication: Hypovitaminosis
     Dosage: 500 MILLIGRAM, BID
     Dates: start: 20150715
  33. CALCIUM CARBONATE\VITAMIN D [Concomitant]
     Active Substance: CALCIUM CARBONATE\VITAMIN D
     Indication: Hypovitaminosis
     Dosage: 600 MILLIGRAM, BID
     Dates: start: 20140116
  34. DICYCLOMINE [Concomitant]
     Active Substance: DICYCLOMINE HYDROCHLORIDE
     Indication: Malabsorption
     Dosage: 10 MILLIGRAM, TID
     Dates: start: 20170125
  35. GLUTAMINE [Concomitant]
     Active Substance: GLUTAMINE
     Indication: Protein deficiency
     Dosage: 10 GRAM, BID
     Dates: start: 20130927
  36. METRONIDAZOLE [Concomitant]
     Active Substance: METRONIDAZOLE
     Indication: Malabsorption
     Dosage: 250 MILLIGRAM, TID
     Dates: start: 20100901
  37. OMEPRAZOLE [Concomitant]
     Active Substance: OMEPRAZOLE
     Indication: Malabsorption
     Dosage: 20 MILLIGRAM, BID
     Dates: start: 20100901
  38. PANCRELIPASE [Concomitant]
     Active Substance: PANCRELIPASE
     Indication: Malabsorption
     Dosage: 20000 INTERNATIONAL UNIT, TID
     Dates: start: 20160527
  39. PECTIN [Concomitant]
     Active Substance: PECTIN
     Indication: Malabsorption
     Dosage: 500 MILLIGRAM, TID
     Dates: start: 20100901
  40. POTASSIUM CHLORIDE [Concomitant]
     Active Substance: POTASSIUM CHLORIDE
     Indication: Hypovitaminosis
     Dosage: 20 INTERNATIONAL UNIT, QD
     Dates: start: 20160413
  41. SELENIUM [Concomitant]
     Active Substance: SELENIUM
     Indication: Mineral deficiency
     Dosage: 200 MICROGRAM, QD
     Dates: start: 20130925
  42. CARAFATE [Concomitant]
     Active Substance: SUCRALFATE
     Indication: Malabsorption
     Dosage: 1 GRAM, TID
     Dates: start: 20100901
  43. THIAMINE HYDROCHLORIDE [Concomitant]
     Active Substance: THIAMINE HYDROCHLORIDE
     Indication: Hypovitaminosis
     Dosage: 50 MILLIGRAM, QD
     Dates: start: 20130925
  44. TOLTERODINE TARTRATE [Concomitant]
     Active Substance: TOLTERODINE TARTRATE
     Indication: Electrolyte imbalance
     Dosage: 4 MILLIGRAM, QD
     Dates: start: 20100901
  45. ZINC SULFATE [Concomitant]
     Active Substance: ZINC SULFATE
     Indication: Mineral deficiency
     Dosage: 220 MILLIGRAM, BID
     Dates: start: 20130925

REACTIONS (4)
  - COVID-19 [Recovered/Resolved]
  - Hyponatraemia [Recovered/Resolved with Sequelae]
  - Staphylococcal sepsis [Recovered/Resolved]
  - Hypomagnesaemia [Recovered/Resolved]

NARRATIVE: CASE EVENT DATE: 20200706
